FAERS Safety Report 20766239 (Version 1)
Quarter: 2022Q2

REPORT INFORMATION
  Report Type: Spontaneous
  Country: AU (occurrence: AU)
  Receive Date: 20220428
  Receipt Date: 20220428
  Transmission Date: 20220721
  Serious: Yes (Other)
  Sender: FDA-Public Use
  Company Number: AU-ALLERGAN-2213574US

PATIENT
  Sex: Female

DRUGS (1)
  1. LEVONORGESTREL [Suspect]
     Active Substance: LEVONORGESTREL
     Indication: Contraception
     Dosage: 52 MG, SINGLE
     Route: 015

REACTIONS (5)
  - Abortion induced [Unknown]
  - Device use error [Unknown]
  - Intentional device use issue [Unknown]
  - Pregnancy [Unknown]
  - Drug ineffective [Unknown]
